FAERS Safety Report 7223861-X (Version None)
Quarter: 2011Q1

REPORT INFORMATION
  Report Type: 
  Country: None (occurrence: None)
  Receive Date: 20110112
  Receipt Date: 20110104
  Transmission Date: 20110831
  Serious: Yes (Hospitalization)
  Sender: FDA-Public Use
  Company Number: US-ELI_LILLY_AND_COMPANY-US201101001056

PATIENT
  Sex: Male
  Weight: 142 kg

DRUGS (2)
  1. BYETTA [Suspect]
     Indication: TYPE 2 DIABETES MELLITUS
     Dosage: 10 UG, 2/D
     Route: 058
     Dates: start: 20100101
  2. HALOPERIDOL [Concomitant]

REACTIONS (12)
  - CHEST PAIN [None]
  - VOMITING [None]
  - DIZZINESS [None]
  - CONFUSIONAL STATE [None]
  - DIARRHOEA [None]
  - HOSPITALISATION [None]
  - OEDEMA PERIPHERAL [None]
  - NAUSEA [None]
  - DRUG DISPENSING ERROR [None]
  - IRRITABILITY [None]
  - CELLULITIS [None]
  - RASH [None]
